FAERS Safety Report 8645559 (Version 3)
Quarter: 2013Q3

REPORT INFORMATION
  Report Type: Report from Study
  Country: FR (occurrence: FR)
  Receive Date: 20120702
  Receipt Date: 20130711
  Transmission Date: 20140515
  Serious: Yes (Death)
  Sender: FDA-Public Use
  Company Number: FR-CELGENEUS-056-21880-12063506

PATIENT
  Sex: Female
  Weight: 49 kg

DRUGS (9)
  1. REVLIMID [Suspect]
     Indication: MYELODYSPLASTIC SYNDROME
     Dosage: 25 MILLIGRAM
     Route: 048
     Dates: start: 20120203, end: 20120209
  2. REVLIMID [Suspect]
     Indication: ACUTE MYELOID LEUKAEMIA
  3. ARACYTIN [Suspect]
     Indication: MYELODYSPLASTIC SYNDROME
     Dosage: 288 MILLIGRAM
     Route: 058
     Dates: start: 20120203, end: 20120209
  4. ARACYTIN [Suspect]
     Indication: ACUTE MYELOID LEUKAEMIA
  5. DOXORUBICINE [Suspect]
     Indication: MYELODYSPLASTIC SYNDROME
     Dosage: 85 MILLIGRAM
     Route: 058
     Dates: start: 20120203, end: 20120205
  6. DOXORUBICINE [Suspect]
     Indication: ACUTE MYELOID LEUKAEMIA
  7. NEUPOGEN [Concomitant]
     Indication: PRODUCT USED FOR UNKNOWN INDICATION
     Route: 065
  8. VITAMIN K [Concomitant]
     Indication: VITAMIN K DEFICIENCY
     Route: 065
  9. MEDIATOR [Concomitant]
     Indication: AORTIC VALVE INCOMPETENCE
     Route: 065

REACTIONS (2)
  - Septic shock [Fatal]
  - Intestinal obstruction [Fatal]
